FAERS Safety Report 11471731 (Version 8)
Quarter: 2015Q4

REPORT INFORMATION
  Report Type: Spontaneous
  Country: JP (occurrence: JP)
  Receive Date: 20150908
  Receipt Date: 20151226
  Transmission Date: 20160304
  Serious: Yes (Hospitalization)
  Sender: FDA-Public Use
  Company Number: PHJP2015JP015130

PATIENT
  Age: 79 Year
  Sex: Male
  Weight: 54 kg

DRUGS (6)
  1. EXELON PATCH [Suspect]
     Active Substance: RIVASTIGMINE
     Dosage: 4.6MG/24H (PATCH 05, 09 MG RIVASTIGMINE BASE)
     Route: 062
     Dates: start: 20151027
  2. MEMARY [Suspect]
     Active Substance: MEMANTINE HYDROCHLORIDE
     Indication: DEMENTIA ALZHEIMER^S TYPE
     Dosage: 5 MG, QD
     Route: 048
     Dates: start: 20150825, end: 20150831
  3. EXELON PATCH [Suspect]
     Active Substance: RIVASTIGMINE
     Indication: DEMENTIA ALZHEIMER^S TYPE
     Dosage: 4.6 MG/24H (PATCH 05 CM2, 09 MG RIVASTIGMINE BASE)
     Route: 062
     Dates: start: 20150825
  4. EXELON PATCH [Suspect]
     Active Substance: RIVASTIGMINE
     Dosage: 6.9 MG/24H (PATCH 7.5 CM2, 13.5 MG RIVASTIGMINE BASE)
     Route: 062
  5. EXELON PATCH [Suspect]
     Active Substance: RIVASTIGMINE
     Dosage: 4.6 MG/24H (PATCH 5, 09MG RIVASTIGMINE BASE)
     Route: 062
     Dates: start: 20151015
  6. MEMARY [Suspect]
     Active Substance: MEMANTINE HYDROCHLORIDE
     Dosage: 10 MG, QD
     Route: 048
     Dates: start: 20150901

REACTIONS (9)
  - Arthralgia [Unknown]
  - Anaemia [Recovered/Resolved]
  - Somnolence [Unknown]
  - White blood cell count increased [Recovered/Resolved]
  - Pneumonia aspiration [Recovering/Resolving]
  - Asthenia [Unknown]
  - Inflammation [Unknown]
  - C-reactive protein increased [Unknown]
  - Femur fracture [Recovering/Resolving]

NARRATIVE: CASE EVENT DATE: 20150831
